FAERS Safety Report 7506802-7 (Version None)
Quarter: 2011Q2

REPORT INFORMATION
  Report Type: 
  Country: None (occurrence: None)
  Receive Date: 20110526
  Receipt Date: 20110523
  Transmission Date: 20111010
  Serious: Yes (Death, Hospitalization)
  Sender: FDA-Public Use
  Company Number: A0913528A

PATIENT
  Age: 75 Year
  Sex: Female

DRUGS (1)
  1. AVANDIA [Suspect]
     Indication: DIABETES MELLITUS
     Route: 048
     Dates: start: 20040201, end: 20090401

REACTIONS (3)
  - CARDIOVASCULAR DISORDER [None]
  - CARDIAC ARREST [None]
  - CORONARY ARTERY DISEASE [None]
